FAERS Safety Report 5080699-X (Version None)
Quarter: 2006Q3

REPORT INFORMATION
  Report Type: 
  Country: None (occurrence: None)
  Receive Date: 20060809
  Receipt Date: 20060724
  Transmission Date: 20061208
  Serious: Yes (Hospitalization)
  Sender: FDA-Public Use
  Company Number: 8018058

PATIENT
  Age: 73 Year
  Sex: Female
  Weight: 86 kg

DRUGS (6)
  1. KEPPRA [Suspect]
     Indication: CONVULSION
     Dosage: 938 MG PO
     Route: 048
     Dates: start: 20031001
  2. TYLENOL [Concomitant]
  3. KEFZOL [Concomitant]
  4. FLAGYL I.V. [Concomitant]
  5. DILAUDID [Concomitant]
  6. GRAVOL TAB [Concomitant]

REACTIONS (2)
  - ATRIOVENTRICULAR BLOCK SECOND DEGREE [None]
  - ATRIOVENTRICULAR BLOCK THIRD DEGREE [None]
